FAERS Safety Report 17668991 (Version 2)
Quarter: 2020Q2

REPORT INFORMATION
  Report Type: Spontaneous
  Country: AT (occurrence: AT)
  Receive Date: 20200415
  Receipt Date: 20200424
  Transmission Date: 20200713
  Serious: Yes (Hospitalization, Other)
  Sender: FDA-Public Use
  Company Number: AT-SA-BI2013BI40710GD

PATIENT
  Age: 89 Year
  Sex: Female
  Weight: 68 kg

DRUGS (12)
  1. ALPRAZOLAM. [Interacting]
     Active Substance: ALPRAZOLAM
     Dosage: .25 MG,QD
     Route: 065
  2. NICORANDIL [Concomitant]
     Active Substance: NICORANDIL
     Dosage: 10 MG,BID
     Route: 065
  3. ZOLPIDEM TARTRATE. [Suspect]
     Active Substance: ZOLPIDEM TARTRATE
     Dosage: 5 MG,QD
     Route: 065
  4. DABIGATRAN ETEXILATE [Interacting]
     Active Substance: DABIGATRAN ETEXILATE
     Indication: ATRIAL FIBRILLATION
     Dosage: 110 MG,BID
     Route: 065
     Dates: start: 201210, end: 201210
  5. LEVOTHYROXINE SODIUM. [Interacting]
     Active Substance: LEVOTHYROXINE SODIUM
     Indication: HYPOTHYROIDISM
     Dosage: 125 UG,QD
     Route: 065
  6. DRONEDARONE [Interacting]
     Active Substance: DRONEDARONE
     Dosage: 400 MG,BID
     Route: 065
  7. ATORVASTATIN [Interacting]
     Active Substance: ATORVASTATIN
     Dosage: 20 MG,QD
     Route: 065
  8. MACROGOL 4000 [Concomitant]
     Active Substance: POLYETHYLENE GLYCOL 4000
     Dosage: 13 G,QD
     Route: 065
  9. PANTOPRAZOLE SODIUM. [Interacting]
     Active Substance: PANTOPRAZOLE SODIUM
     Dosage: 40 MG,QD
     Route: 065
  10. FUROSEMIDE. [Interacting]
     Active Substance: FUROSEMIDE
     Dosage: 40 MG,QD
     Route: 065
  11. LORNOXICAM [Suspect]
     Active Substance: LORNOXICAM
     Dosage: 8 MG,BID
     Route: 065
  12. ISOSORBIDE MONONITRATE. [Concomitant]
     Active Substance: ISOSORBIDE MONONITRATE
     Dosage: 50 MG,QD
     Route: 065

REACTIONS (16)
  - Ischaemic stroke [Unknown]
  - Melaena [Unknown]
  - Dyspnoea [Unknown]
  - Eyelid ptosis [Unknown]
  - Colitis ischaemic [Unknown]
  - Blood loss anaemia [Unknown]
  - Neuromyopathy [Unknown]
  - Hiatus hernia [Unknown]
  - Mucosal disorder [Unknown]
  - Intestinal haemorrhage [Unknown]
  - Diverticulum [Unknown]
  - Hyponatraemia [Recovered/Resolved]
  - Rebound effect [Unknown]
  - Vertigo [Unknown]
  - Gastritis erosive [Unknown]
  - Drug interaction [Unknown]

NARRATIVE: CASE EVENT DATE: 201210
